FAERS Safety Report 9139612 (Version 2)
Quarter: 2013Q1

REPORT INFORMATION
  Report Type: Spontaneous
  Country: AT (occurrence: AT)
  Receive Date: 20130305
  Receipt Date: 20130319
  Transmission Date: 20140127
  Serious: Yes (Other)
  Sender: FDA-Public Use
  Company Number: AT-JNJFOC-20130216446

PATIENT
  Age: 27 Year
  Sex: Female

DRUGS (10)
  1. DOXORUBICIN [Suspect]
     Indication: EWING^S SARCOMA
     Dosage: ON DAYS 1-3
     Route: 042
  2. DOXORUBICIN [Suspect]
     Indication: EWING^S SARCOMA
     Dosage: ON DAYS 1-3
     Route: 042
  3. DOXORUBICIN [Suspect]
     Indication: EWING^S SARCOMA
     Dosage: ON DAYS 1-3
     Route: 065
  4. DOXORUBICIN [Suspect]
     Indication: EWING^S SARCOMA
     Dosage: ON DAYS 1-3
     Route: 065
  5. ETOPOSIDE [Suspect]
     Indication: EWING^S SARCOMA
     Route: 065
  6. ETOPOSIDE [Suspect]
     Indication: EWING^S SARCOMA
     Route: 065
  7. IFOSFAMIDE [Suspect]
     Indication: EWING^S SARCOMA
     Route: 065
  8. IFOSFAMIDE [Suspect]
     Indication: EWING^S SARCOMA
     Route: 065
  9. VINCRISTINE [Suspect]
     Indication: EWING^S SARCOMA
     Dosage: ON DAY 1
     Route: 065
  10. VINCRISTINE [Suspect]
     Indication: EWING^S SARCOMA
     Dosage: ON DAY 1
     Route: 065

REACTIONS (3)
  - Foetal death [Recovered/Resolved]
  - Exposure during pregnancy [Recovered/Resolved]
  - Off label use [Unknown]
